FAERS Safety Report 9168174 (Version 2)
Quarter: 2013Q2

REPORT INFORMATION
  Report Type: Spontaneous
  Country: JP (occurrence: JP)
  Receive Date: 20130318
  Receipt Date: 20130410
  Transmission Date: 20140414
  Serious: Yes (Other)
  Sender: FDA-Public Use
  Company Number: JP-ELI_LILLY_AND_COMPANY-JP201210004846

PATIENT
  Age: 75 Year
  Sex: Female

DRUGS (1)
  1. FORTEO [Suspect]
     Dosage: UNK
     Route: 058
     Dates: start: 20120901

REACTIONS (6)
  - Osteomyelitis [Unknown]
  - Injection site erythema [Unknown]
  - Injection site warmth [Unknown]
  - Nasopharyngitis [Unknown]
  - Neuralgia [Unknown]
  - Pain in extremity [Unknown]
